FAERS Safety Report 11801384 (Version 1)
Quarter: 2015Q4

REPORT INFORMATION
  Report Type: Spontaneous
  Country: US (occurrence: None)
  Receive Date: 20151203
  Receipt Date: 20151203
  Transmission Date: 20160305
  Serious: Yes (Disabling)
  Sender: FDA-Public Use
  Company Number: None

PATIENT
  Age: 78 Year
  Sex: Male
  Weight: 81.65 kg

DRUGS (12)
  1. FERROUS SULF [Concomitant]
  2. LIPITOR [Concomitant]
     Active Substance: ATORVASTATIN CALCIUM
  3. DOXOZOSIN [Concomitant]
  4. HYDROCORTISONE CREAM [Concomitant]
     Active Substance: HYDROCORTISONE
  5. DOCOLACE [Concomitant]
  6. CALCIUM CARBONATE. [Concomitant]
     Active Substance: CALCIUM CARBONATE
  7. LISINOPRIL. [Concomitant]
     Active Substance: LISINOPRIL
  8. NIACIN. [Concomitant]
     Active Substance: NIACIN
  9. ULS-FRIN [Concomitant]
  10. CALCIPOTRIENE SUBSTITUTED FOR DOVONEX CREAMS LEO LABORATERIES DUBLIN, IRELAND (MFG. FOR PROSCO LABORATORIES MASON, OH. 45040 USA. [Suspect]
     Active Substance: CALCIPOTRIENE
     Indication: PSORIASIS
     Dosage: .005 CREAM?TWICE DAILEY?ON THE SKIN
     Route: 061
     Dates: start: 20140601, end: 20150830
  11. BYSTOLIC [Concomitant]
     Active Substance: NEBIVOLOL HYDROCHLORIDE
  12. POTASSIUM-CALICIPOTRIENE [Concomitant]

REACTIONS (2)
  - Drug ineffective [None]
  - Product substitution issue [None]

NARRATIVE: CASE EVENT DATE: 20140612
